FAERS Safety Report 9725893 (Version 1)
Quarter: 2013Q4

REPORT INFORMATION
  Report Type: Spontaneous
  Country: US (occurrence: None)
  Receive Date: 20131202
  Receipt Date: 20131202
  Transmission Date: 20140711
  Serious: Yes (Death, Life-Threatening, Hospitalization, Disabling, Other)
  Sender: FDA-Public Use
  Company Number: None

PATIENT
  Age: 62 Year
  Sex: Male
  Weight: 53.52 kg

DRUGS (1)
  1. HEPARIN [Suspect]
     Indication: PULMONARY EMBOLISM

REACTIONS (6)
  - Infection [None]
  - Spinal haematoma [None]
  - Overdose [None]
  - Weight decreased [None]
  - Hypophagia [None]
  - Drug dose omission [None]
